FAERS Safety Report 7942141-8 (Version None)
Quarter: 2011Q4

REPORT INFORMATION
  Report Type: 
  Country: None (occurrence: None)
  Receive Date: 20111123
  Receipt Date: 20111123
  Transmission Date: 20120403
  Serious: No
  Sender: FDA-Public Use
  Company Number: None

PATIENT
  Sex: Female
  Weight: 56.6996 kg

DRUGS (2)
  1. ACTONEL [Suspect]
     Indication: BONE DENSITY ABNORMAL
     Dosage: 1 PILL PER WEEK
     Dates: start: 20111030
  2. ACTONEL [Suspect]
     Indication: BONE DENSITY ABNORMAL
     Dosage: 1 PILL PER WEEK
     Dates: start: 20111023

REACTIONS (2)
  - GASTROOESOPHAGEAL REFLUX DISEASE [None]
  - INSOMNIA [None]
